FAERS Safety Report 21224439 (Version 2)
Quarter: 2022Q4

REPORT INFORMATION
  Report Type: Report from Study
  Country: CO (occurrence: CO)
  Receive Date: 20220817
  Receipt Date: 20221031
  Transmission Date: 20230113
  Serious: Yes (Other)
  Sender: FDA-Public Use
  Company Number: CO-ALLERGAN-2226410US

PATIENT
  Sex: Female
  Weight: 71 kg

DRUGS (3)
  1. BOTULINUM TOXIN TYPE A [Suspect]
     Active Substance: BOTULINUM TOXIN TYPE A
     Indication: Migraine
     Dosage: 200 UNITS, SINGLE
     Route: 030
     Dates: start: 20210601, end: 20210601
  2. BOTULINUM TOXIN TYPE A [Suspect]
     Active Substance: BOTULINUM TOXIN TYPE A
     Dosage: UNK, SINGLE
  3. SATOREN H [Concomitant]
     Indication: Hypertension
     Dosage: UNK
     Dates: start: 2017

REACTIONS (8)
  - Deafness [Recovered/Resolved]
  - Ear haemorrhage [Recovered/Resolved]
  - Feeling abnormal [Recovered/Resolved]
  - Feeling of despair [Recovered/Resolved]
  - Blood pressure decreased [Recovered/Resolved]
  - Eye pain [Recovered/Resolved]
  - Ear disorder [Recovered/Resolved]
  - Headache [Recovered/Resolved]

NARRATIVE: CASE EVENT DATE: 20220601
